FAERS Safety Report 7164358-5 (Version None)
Quarter: 2010Q4

REPORT INFORMATION
  Report Type: 
  Country: None (occurrence: None)
  Receive Date: 20101201
  Receipt Date: 20101115
  Transmission Date: 20110411
  Serious: Yes (Other)
  Sender: FDA-Public Use
  Company Number: 1000017498

PATIENT
  Age: 40 Year
  Sex: Male
  Weight: 64 kg

DRUGS (4)
  1. ESCITALOPRAM [Suspect]
     Dosage: 10 MG (10 MG, 1 IN 1 D), ORAL
     Route: 048
     Dates: start: 20100621, end: 20100625
  2. DENIBAN (AMISULPRIDE) (AMISULPRIDE) [Concomitant]
  3. ESILGAN (ESTAZOLAM) (ESTAZOLAM) [Concomitant]
  4. REALSIL (REALSIL) (REALSIL) [Concomitant]

REACTIONS (24)
  - ABDOMINAL PAIN UPPER [None]
  - ABNORMAL DREAMS [None]
  - ARTHRALGIA [None]
  - ASTHENIA [None]
  - BLOOD SODIUM DECREASED [None]
  - CONFUSIONAL STATE [None]
  - DEPERSONALISATION [None]
  - DEPRESSION [None]
  - DIARRHOEA [None]
  - DRUG DISPENSING ERROR [None]
  - DRY MOUTH [None]
  - ERECTILE DYSFUNCTION [None]
  - FALL [None]
  - FATIGUE [None]
  - HEART RATE DECREASED [None]
  - HYPERHIDROSIS [None]
  - HYPOTONIA [None]
  - LIVER FUNCTION TEST ABNORMAL [None]
  - MALAISE [None]
  - MYALGIA [None]
  - PAIN [None]
  - SOMNOLENCE [None]
  - TREMOR [None]
  - WEIGHT DECREASED [None]
